FAERS Safety Report 4971851-X (Version None)
Quarter: 2006Q2

REPORT INFORMATION
  Report Type: 
  Country: None (occurrence: None)
  Receive Date: 20060407
  Receipt Date: 20060329
  Transmission Date: 20061013
  Serious: Yes (Hospitalization, Other)
  Sender: FDA-Public Use
  Company Number: 2006044318

PATIENT
  Age: 47 Year
  Sex: Female
  Weight: 83.9154 kg

DRUGS (7)
  1. VIRACEPT [Suspect]
     Indication: HIV INFECTION
     Dosage: 1000 MG (1000 MG, 1 IN 1 D)
  2. PRAVACHOL [Suspect]
     Indication: BLOOD CHOLESTEROL INCREASED
     Dates: start: 20060101, end: 20060101
  3. ALL OTHER NON-THERAPEUTIC PRODUCTS (ALL OTHER NON-THERAPEUTIC PRODUCTS [Suspect]
     Indication: ILL-DEFINED DISORDER
     Dosage: ORAL
     Route: 048
  4. COMBIVIR [Concomitant]
  5. CYMBALTA [Concomitant]
  6. VALTREX [Concomitant]
  7. WELLBUTRIN [Concomitant]

REACTIONS (7)
  - ABDOMINAL PAIN UPPER [None]
  - BACTERIAL INFECTION [None]
  - BLOOD CHOLESTEROL INCREASED [None]
  - DIVERTICULITIS [None]
  - HEADACHE [None]
  - T-LYMPHOCYTE COUNT DECREASED [None]
  - WEIGHT INCREASED [None]
